FAERS Safety Report 19944012 (Version 1)
Quarter: 2021Q4

REPORT INFORMATION
  Report Type: Spontaneous
  Country: US (occurrence: US)
  Receive Date: 20211012
  Receipt Date: 20211012
  Transmission Date: 20220303
  Serious: Yes (Hospitalization)
  Sender: FDA-Public Use
  Company Number: US-BOIRON-2021 00677

PATIENT
  Age: 14 Month
  Sex: Female

DRUGS (3)
  1. HOMEOPATHICS [Suspect]
     Active Substance: HOMEOPATHICS
     Indication: Teething
     Dosage: 1 DOSAGE UNITS, AT BEDTIME, INTERMITTENTLY AND AS NEEDED
  2. DR TALBOT SOOTHING TABLETS [Concomitant]
  3. TYLENOL [Concomitant]
     Active Substance: ACETAMINOPHEN

REACTIONS (1)
  - Hepatic enzyme increased [Recovered/Resolved]
